FAERS Safety Report 23173336 (Version 2)
Quarter: 2023Q4

REPORT INFORMATION
  Report Type: Spontaneous
  Country: US (occurrence: US)
  Receive Date: 20231111
  Receipt Date: 20231220
  Transmission Date: 20240110
  Serious: No
  Sender: FDA-Public Use
  Company Number: US-GSK-US2023AMR154130

PATIENT
  Sex: Female

DRUGS (2)
  1. SUMATRIPTAN SUCCINATE [Suspect]
     Active Substance: SUMATRIPTAN SUCCINATE
     Indication: Product used for unknown indication
     Dosage: UNK, 6MG/0.5ML, 2-UD SYRINGE
  2. SUMATRIPTAN SUCCINATE [Suspect]
     Active Substance: SUMATRIPTAN SUCCINATE
     Dosage: UNK

REACTIONS (2)
  - Product dose omission issue [Unknown]
  - Product complaint [Unknown]
